FAERS Safety Report 17510050 (Version 1)
Quarter: 2020Q1

REPORT INFORMATION
  Report Type: Report from Study
  Country: US (occurrence: US)
  Receive Date: 20200306
  Receipt Date: 20200306
  Transmission Date: 20200409
  Serious: Yes (Hospitalization, Other)
  Sender: FDA-Public Use
  Company Number: US-VELOXIS PHARMACEUTICALS-2020VELUS-000012

PATIENT
  Age: 72 Year
  Sex: Male
  Weight: 85 kg

DRUGS (19)
  1. ALBUTEROL [SALBUTAMOL] [Concomitant]
     Active Substance: ALBUTEROL
     Indication: PROPHYLAXIS AGAINST BRONCHOSPASM
     Dosage: 2.5 MG, QMO
     Route: 048
     Dates: start: 20200103
  2. HUMALOG [Concomitant]
     Active Substance: INSULIN LISPRO
     Indication: TYPE 1 DIABETES MELLITUS
     Dosage: INJECT WITH MEALS USING 1:4 GM ICR AM AND 1:6 GM ICR NOON AND PM
     Dates: start: 20191220
  3. IMODIUM [Concomitant]
     Active Substance: LOPERAMIDE HYDROCHLORIDE
     Indication: DIARRHOEA
     Dosage: 2 MG, BID; TAKES 1 HOUR BEFORE MYCOPHENOLATE TO PREVENT DIARRHEA
     Route: 048
  4. ELIQUIS [Concomitant]
     Active Substance: APIXABAN
     Indication: ATRIAL FIBRILLATION
     Dosage: 2.5 MG, BID
     Route: 048
     Dates: start: 20191220
  5. TOPROL XL [Concomitant]
     Active Substance: METOPROLOL SUCCINATE
     Indication: ATRIAL FIBRILLATION
     Dosage: 25 MG, QD IN EVENING
     Route: 048
  6. ENVARSUS XR [Suspect]
     Active Substance: TACROLIMUS
     Indication: IMMUNOSUPPRESSION
     Dosage: 2 MG, QD
     Route: 048
     Dates: start: 20190115
  7. MYCOPHENOLATE SODIUM [Concomitant]
     Active Substance: MYCOPHENOLATE SODIUM
     Indication: RENAL TRANSPLANT
     Dosage: 360 MG, BID AT MEALTIME
     Route: 048
  8. PENTAM [Concomitant]
     Active Substance: PENTAMIDINE ISETHIONATE
     Indication: PROPHYLAXIS
     Dosage: 300 MG, QD
     Route: 045
     Dates: start: 20200103
  9. VALTREX [Concomitant]
     Active Substance: VALACYCLOVIR HYDROCHLORIDE
     Indication: VIRAL INFECTION
     Dosage: 500 MG, QD
     Route: 048
     Dates: start: 20191115
  10. NIFEDIPINE. [Concomitant]
     Active Substance: NIFEDIPINE
     Indication: HYPERTENSION
     Dosage: 30 MG, QD
     Route: 048
     Dates: start: 20191223
  11. SODIUM CHLORIDE. [Concomitant]
     Active Substance: SODIUM CHLORIDE
     Indication: ABSCESS
     Dosage: FLUSH RIGHT ABDOMINAL DRAIN TUBE WITH 10 ML STERILE SALINE DAILY
     Dates: start: 20191204
  12. CALCIUM CARBONATE;CHOLECALCIFEROL;SODIUM [Concomitant]
     Indication: OSTEOPOROSIS PROPHYLAXIS
     Dosage: 2 DF, BID
     Route: 048
     Dates: start: 20191115
  13. SODIUM BICARBONATE. [Concomitant]
     Active Substance: SODIUM BICARBONATE
     Indication: SUPPLEMENTATION THERAPY
     Dosage: 650 MG, TID
     Route: 048
     Dates: start: 20191231
  14. ASPIRIN [ACETYLSALICYLIC ACID] [Concomitant]
     Active Substance: ASPIRIN
     Indication: PRODUCT USED FOR UNKNOWN INDICATION
     Dosage: 81 MG, QD
     Route: 048
     Dates: start: 20180213
  15. MULTIVITAMIN WITH MINERALS [Concomitant]
     Active Substance: MINERALS\VITAMINS
     Indication: NUTRITIONAL SUPPLEMENTATION
     Dosage: 1 DF, QD
     Route: 048
     Dates: start: 20191220
  16. DELTASONE [PREDNISOLONE] [Concomitant]
     Indication: PRODUCT USED FOR UNKNOWN INDICATION
     Dosage: 20 MG THREE TIMES DAILY (60 MG PER DAY) FOR 3 WEEKS, THEN TAPER BY 5 MG PER WEEK DOWN TO 10
  17. TYLENOL [Concomitant]
     Active Substance: ACETAMINOPHEN
     Indication: PAIN
     Dosage: 2 TABS BY MOUTH EVERY 4 HOURS AS NEEDED
     Route: 048
     Dates: start: 20191115
  18. PEPCID [Concomitant]
     Active Substance: FAMOTIDINE
     Indication: GASTROOESOPHAGEAL REFLUX DISEASE
     Dosage: 20 MG, BID
     Route: 048
     Dates: start: 20191204, end: 20200103
  19. LANTUS [Concomitant]
     Active Substance: INSULIN GLARGINE
     Indication: DIABETES MELLITUS
     Dosage: INJECT 14 UNITS UNDER SKIN ONE TIME DAILY AT BEDTIME.
     Route: 058
     Dates: start: 20191220

REACTIONS (2)
  - Renal tubular injury [Recovered/Resolved]
  - Cholecystitis acute [Recovered/Resolved]

NARRATIVE: CASE EVENT DATE: 20200101
